FAERS Safety Report 10216126 (Version 1)
Quarter: 2014Q2

REPORT INFORMATION
  Report Type: Spontaneous
  Country: US (occurrence: None)
  Receive Date: 20140603
  Receipt Date: 20140603
  Transmission Date: 20141212
  Serious: Yes (Other)
  Sender: FDA-Public Use
  Company Number: None

PATIENT
  Age: 54 Year
  Sex: Male
  Weight: 77.11 kg

DRUGS (1)
  1. CIPROFLOXACIN 500MG [Suspect]
     Indication: EAR INFECTION
     Dosage: 14, TWICE DAILY, TAKEN BY MOUTH
     Route: 048
     Dates: start: 20140519, end: 20140520

REACTIONS (4)
  - Hypoaesthesia [None]
  - Pain in extremity [None]
  - Paraesthesia [None]
  - Middle insomnia [None]
